FAERS Safety Report 7968558-3 (Version None)
Quarter: 2011Q4

REPORT INFORMATION
  Report Type: 
  Country: None (occurrence: None)
  Receive Date: 20111209
  Receipt Date: 20111130
  Transmission Date: 20120403
  Serious: Yes (Hospitalization, Other)
  Sender: FDA-Public Use
  Company Number: US-MERCK-1108USA02955

PATIENT
  Age: 62 Year
  Sex: Female
  Weight: 61 kg

DRUGS (6)
  1. METHOTREXATE [Concomitant]
     Route: 065
     Dates: start: 19900101
  2. ENBREL [Concomitant]
     Route: 065
     Dates: start: 20060101
  3. FOSAMAX [Suspect]
     Route: 048
     Dates: start: 20080101, end: 20090201
  4. FOSAMAX [Suspect]
     Indication: OSTEOPENIA
     Route: 048
     Dates: start: 20000101, end: 20080101
  5. HORMONES (UNSPECIFIED) [Concomitant]
     Route: 065
     Dates: start: 19800101, end: 20060101
  6. RELAFEN [Concomitant]
     Route: 065
     Dates: start: 19800101

REACTIONS (19)
  - ANAEMIA POSTOPERATIVE [None]
  - BLADDER DISORDER [None]
  - INFLUENZA [None]
  - DEVICE FAILURE [None]
  - DIVERTICULUM INTESTINAL [None]
  - VOMITING [None]
  - FRACTURE NONUNION [None]
  - RHINORRHOEA [None]
  - CATARACT [None]
  - NAUSEA [None]
  - FEMUR FRACTURE [None]
  - SPINAL OSTEOARTHRITIS [None]
  - FALL [None]
  - DEHYDRATION [None]
  - NASAL CONGESTION [None]
  - DEPRESSION [None]
  - ARTHROPATHY [None]
  - RHEUMATOID NODULE [None]
  - OSTEOARTHRITIS [None]
